FAERS Safety Report 8512721-X (Version None)
Quarter: 2012Q3

REPORT INFORMATION
  Report Type: 
  Country: None (occurrence: None)
  Receive Date: 20120716
  Receipt Date: 20120706
  Transmission Date: 20120928
  Serious: Yes (Other)
  Sender: FDA-Public Use
  Company Number: US-JNJFOC-20120703656

PATIENT
  Sex: Male

DRUGS (1)
  1. REMICADE [Suspect]
     Indication: CROHN'S DISEASE
     Dosage: THERAPY DURATION REPORTED AS ^A LONG TIME^
     Route: 042

REACTIONS (2)
  - RENAL CELL CARCINOMA [None]
  - SURGERY [None]
